FAERS Safety Report 22032422 (Version 1)
Quarter: 2023Q1

REPORT INFORMATION
  Report Type: Other
  Country: US (occurrence: None)
  Receive Date: 20230224
  Receipt Date: 20230224
  Transmission Date: 20230418
  Serious: Yes (Other)
  Sender: FDA-Public Use
  Company Number: US-ROCHE-3291860

PATIENT
  Age: 68 Year
  Sex: Female

DRUGS (5)
  1. ACTEMRA [Suspect]
     Active Substance: TOCILIZUMAB
     Indication: Rheumatoid arthritis
     Dosage: INJECT 162MG SUBCUTANEOUSLY EVERY 14 DAY
     Route: 058
  2. ACTEMRA [Suspect]
     Active Substance: TOCILIZUMAB
  3. ACTEMRA [Suspect]
     Active Substance: TOCILIZUMAB
     Indication: Rheumatoid arthritis
  4. ACTEMRA [Suspect]
     Active Substance: TOCILIZUMAB
  5. RITUXAN [Suspect]
     Active Substance: RITUXIMAB
     Indication: Product used for unknown indication
     Dosage: INFUSE 1000MG INTRAVENOUSLY ON DAY(S) 1 AND DAY(S) 15 EVERY 6 MONTH, VIAL
     Route: 041

REACTIONS (7)
  - Deafness [Unknown]
  - Nasopharyngitis [Unknown]
  - Perforation [Unknown]
  - Acarodermatitis [Unknown]
  - Ill-defined disorder [Unknown]
  - Dysphonia [Unknown]
  - Cough [Unknown]
